FAERS Safety Report 13492817 (Version 3)
Quarter: 2018Q4

REPORT INFORMATION
  Report Type: Spontaneous
  Country: US (occurrence: US)
  Receive Date: 20170427
  Receipt Date: 20181026
  Transmission Date: 20190204
  Serious: No
  Sender: FDA-Public Use
  Company Number: US-ALLERGAN-1716301US

PATIENT
  Sex: Female

DRUGS (4)
  1. ALPHAGAN P [Suspect]
     Active Substance: BRIMONIDINE TARTRATE
     Indication: GLAUCOMA
     Dosage: 11 GTT, QD
     Route: 047
     Dates: start: 2015
  2. PILOCARPINE. [Concomitant]
     Active Substance: PILOCARPINE
     Dosage: UNK, QID
     Route: 065
  3. TRAVATAN [Concomitant]
     Active Substance: TRAVOPROST
     Dosage: UNK, QD
     Route: 047
  4. ALPHAGAN P [Suspect]
     Active Substance: BRIMONIDINE TARTRATE
     Dosage: UNK
     Route: 047

REACTIONS (3)
  - Dyspnoea [Unknown]
  - Incorrect dose administered [Unknown]
  - Malaise [Not Recovered/Not Resolved]
